FAERS Safety Report 24326154 (Version 1)
Quarter: 2024Q3

REPORT INFORMATION
  Report Type: Spontaneous
  Country: US (occurrence: US)
  Receive Date: 20240917
  Receipt Date: 20240917
  Transmission Date: 20241017
  Serious: Yes (Other)
  Sender: ROCHE
  Company Number: US-ROCHE-10000077357

PATIENT
  Age: 27 Year
  Sex: Female
  Weight: 48.07 kg

DRUGS (7)
  1. CELLCEPT [Suspect]
     Active Substance: MYCOPHENOLATE MOFETIL
     Indication: Product used for unknown indication
     Route: 065
  2. LUPKYNIS [Suspect]
     Active Substance: VOCLOSPORIN
     Indication: Lupus nephritis
     Dosage: ONGOING
     Route: 048
     Dates: start: 20230313
  3. LUPKYNIS [Suspect]
     Active Substance: VOCLOSPORIN
     Dosage: ONGOING
     Route: 048
     Dates: start: 20230116
  4. LUPKYNIS [Suspect]
     Active Substance: VOCLOSPORIN
     Dosage: ONGOING
     Route: 048
     Dates: start: 20230313
  5. IRON [Suspect]
     Active Substance: IRON
     Indication: Product used for unknown indication
     Route: 065
  6. LISINOPRIL [Concomitant]
     Active Substance: LISINOPRIL
  7. PREDNISONE [Concomitant]
     Active Substance: PREDNISONE

REACTIONS (9)
  - Pneumonia [Recovered/Resolved]
  - Cough [Unknown]
  - Illness [Unknown]
  - Leukopenia [Unknown]
  - Anaemia [Unknown]
  - Fatigue [Unknown]
  - Arthralgia [Unknown]
  - Headache [Unknown]
  - Abdominal discomfort [Unknown]
